FAERS Safety Report 14012601 (Version 1)
Quarter: 2017Q3

REPORT INFORMATION
  Report Type: Report from Study
  Country: IT (occurrence: IT)
  Receive Date: 20170926
  Receipt Date: 20170926
  Transmission Date: 20171128
  Serious: Yes (Other)
  Sender: FDA-Public Use
  Company Number: IT-ROCHE-1995065

PATIENT

DRUGS (5)
  1. TRASTUZUMAB. [Suspect]
     Active Substance: TRASTUZUMAB
     Indication: NEOPLASM MALIGNANT
     Route: 065
  2. BEVACIZUMAB. [Suspect]
     Active Substance: BEVACIZUMAB
     Indication: NEOPLASM MALIGNANT
     Route: 065
  3. TOCILIZUMAB. [Suspect]
     Active Substance: TOCILIZUMAB
     Indication: RHEUMATIC DISORDER
     Route: 065
  4. RITUXIMAB. [Suspect]
     Active Substance: RITUXIMAB
     Indication: NEOPLASM MALIGNANT
     Route: 065
  5. RITUXIMAB. [Suspect]
     Active Substance: RITUXIMAB
     Indication: RHEUMATIC DISORDER

REACTIONS (18)
  - Herpes zoster [Unknown]
  - Bronchitis [Unknown]
  - Haemorrhage [Unknown]
  - Paraesthesia [Unknown]
  - Rash [Unknown]
  - Blood disorder [Unknown]
  - Dyspnoea [Unknown]
  - Asthenia [Unknown]
  - Neutropenia [Unknown]
  - Nausea [Unknown]
  - Purpura [Unknown]
  - Pruritus [Unknown]
  - Haematotoxicity [Unknown]
  - Neuropathy peripheral [Unknown]
  - Leukopenia [Unknown]
  - Infusion related reaction [Unknown]
  - Diarrhoea [Unknown]
  - Abdominal pain [Unknown]
